FAERS Safety Report 9997961 (Version 1)
Quarter: 2014Q1

REPORT INFORMATION
  Report Type: Other
  Country: DE (occurrence: DE)
  Receive Date: 20140311
  Receipt Date: 20140311
  Transmission Date: 20141002
  Serious: Yes (Hospitalization)
  Sender: FDA-Public Use
  Company Number: DE-BRISTOL-MYERS SQUIBB COMPANY-20387221

PATIENT
  Age: 50 Year
  Sex: Male

DRUGS (3)
  1. CETUXIMAB [Suspect]
     Indication: LARYNGEAL CANCER
     Dosage: 850MG (400MG/M2) AS A LOADING DOSE AND THEREAFTER 530MG WEEKLY (250MG/M2).
     Dates: start: 20100909
  2. CISPLATIN [Suspect]
  3. PEMETREXED DISODIUM [Suspect]

REACTIONS (4)
  - Hypomagnesaemia [Recovering/Resolving]
  - Ventricular fibrillation [Recovered/Resolved]
  - Cardio-respiratory arrest [Recovered/Resolved]
  - Febrile neutropenia [Unknown]
